FAERS Safety Report 4956840-3 (Version None)
Quarter: 2006Q1

REPORT INFORMATION
  Report Type: 
  Country: None (occurrence: None)
  Receive Date: 20060323
  Receipt Date: 20060310
  Transmission Date: 20060701
  Serious: Yes (Hospitalization)
  Sender: FDA-Public Use
  Company Number: US-2006-005429

PATIENT
  Age: 41 Year
  Sex: Female

DRUGS (8)
  1. BETASERON [Suspect]
     Indication: RELAPSING-REMITTING MULTIPLE SCLEROSIS
     Dosage: 8 MIU, EVERY 2D, SUBCUTANEOUS
     Route: 058
     Dates: start: 20010123
  2. LAMICTAL [Concomitant]
  3. NEURONTIN [Concomitant]
  4. ZANAFLEX [Concomitant]
  5. BACLOFEN [Concomitant]
  6. CLARITIN [Concomitant]
  7. PROZAC [Concomitant]
  8. VOLTAREN [Concomitant]

REACTIONS (14)
  - BLOOD PRESSURE DECREASED [None]
  - CONDITION AGGRAVATED [None]
  - CONVULSION [None]
  - DIPLOPIA [None]
  - FEELING ABNORMAL [None]
  - GRAND MAL CONVULSION [None]
  - INJECTION SITE BRUISING [None]
  - INJECTION SITE DISCOLOURATION [None]
  - LUNG DISORDER [None]
  - MULTIPLE SCLEROSIS [None]
  - PARAESTHESIA [None]
  - PNEUMONIA [None]
  - PRURITUS [None]
  - RASH [None]
